FAERS Safety Report 20948416 (Version 1)
Quarter: 2022Q2

REPORT INFORMATION
  Report Type: Spontaneous
  Country: GB (occurrence: GB)
  Receive Date: 20220611
  Receipt Date: 20220611
  Transmission Date: 20220721
  Serious: Yes (Life-Threatening, Hospitalization)
  Sender: FDA-Public Use
  Company Number: None

PATIENT
  Age: 81 Year
  Sex: Female

DRUGS (12)
  1. DENOSUMAB [Suspect]
     Active Substance: DENOSUMAB
     Indication: Osteoporosis
     Dosage: 60MG  6/12 S/C
  2. INDAPAMIDE [Suspect]
     Active Substance: INDAPAMIDE
     Dosage: 2.5MG OD
  3. IRBESARTAN [Suspect]
     Active Substance: IRBESARTAN
     Dosage: 300MG OD
  4. OMEPRAZOLE [Suspect]
     Active Substance: OMEPRAZOLE
     Dosage: 10MG OD
  5. CALCIUM CARBONATE\CHOLECALCIFEROL [Concomitant]
     Active Substance: CALCIUM CARBONATE\CHOLECALCIFEROL
  6. ATORVASTATIN [Concomitant]
     Active Substance: ATORVASTATIN
  7. DOXYCYCLINE [Concomitant]
     Active Substance: DOXYCYCLINE
     Indication: Lower respiratory tract infection
     Dates: start: 20220201, end: 20220208
  8. BECLOMETHASONE\FORMOTEROL [Concomitant]
     Active Substance: BECLOMETHASONE\FORMOTEROL
  9. LERCANIDIPINE [Concomitant]
     Active Substance: LERCANIDIPINE
  10. INSULIN ASPART [Concomitant]
     Active Substance: INSULIN ASPART
  11. MESALAMINE [Concomitant]
     Active Substance: MESALAMINE
  12. PREDNISOLONE [Concomitant]
     Active Substance: PREDNISOLONE
     Dates: start: 20220201, end: 20220208

REACTIONS (2)
  - Medication error [Unknown]
  - Hypomagnesaemia [Recovered/Resolved]

NARRATIVE: CASE EVENT DATE: 20220425
